FAERS Safety Report 5648494-8 (Version None)
Quarter: 2008Q1

REPORT INFORMATION
  Report Type: 
  Country: None (occurrence: None)
  Receive Date: 20080304
  Receipt Date: 20080225
  Transmission Date: 20080703
  Serious: Yes (Hospitalization, Other)
  Sender: FDA-Public Use
  Company Number: PHBS2008BR02716

PATIENT
  Sex: Male
  Weight: 105 kg

DRUGS (1)
  1. PARLODEL [Suspect]
     Indication: PROLACTINOMA
     Dosage: 2.5 MG, UNK
     Route: 048
     Dates: start: 20060101

REACTIONS (1)
  - GASTRIC OPERATION [None]
